FAERS Safety Report 13554452 (Version 1)
Quarter: 2017Q2

REPORT INFORMATION
  Report Type: Spontaneous
  Country: NL (occurrence: NL)
  Receive Date: 20170517
  Receipt Date: 20170517
  Transmission Date: 20170830
  Serious: Yes (Hospitalization, Other)
  Sender: FDA-Public Use
  Company Number: NL-PFIZER INC-2017211557

PATIENT
  Age: 4 Year
  Sex: Female
  Weight: 14 kg

DRUGS (8)
  1. BACLOFEN. [Concomitant]
     Active Substance: BACLOFEN
     Route: 048
  2. PARACETAMOL [Concomitant]
     Active Substance: ACETAMINOPHEN
  3. DIAZEPAM. [Concomitant]
     Active Substance: DIAZEPAM
  4. GABAPENTIN. [Suspect]
     Active Substance: GABAPENTIN
     Indication: MOVEMENT DISORDER
     Dosage: 100 MG, 3X/DAY
     Route: 048
     Dates: start: 20170315
  5. RANITIDINE HYDROCHLORIDE. [Concomitant]
     Active Substance: RANITIDINE HYDROCHLORIDE
     Route: 048
  6. CALCIUM CARBONATE W/COLECALCIFEROL [Concomitant]
     Active Substance: CALCIUM CARBONATE\CHOLECALCIFEROL
     Route: 048
  7. OMEPRAZOL [Concomitant]
     Active Substance: OMEPRAZOLE
     Dosage: 10 MG, 2X/DAY
     Route: 048
  8. MOVICOLON [Concomitant]
     Active Substance: POLYETHYLENE GLYCOL 3350\POTASSIUM CHLORIDE\SODIUM BICARBONATE\SODIUM CHLORIDE
     Dosage: UNK, AS NEEDED
     Route: 048

REACTIONS (5)
  - Dehydration [Unknown]
  - Drug administered to patient of inappropriate age [Unknown]
  - Pyrexia [Unknown]
  - Rhabdomyolysis [Unknown]
  - Product use in unapproved indication [Unknown]

NARRATIVE: CASE EVENT DATE: 20170315
